FAERS Safety Report 19942717 (Version 2)
Quarter: 2022Q3

REPORT INFORMATION
  Report Type: Spontaneous
  Country: US (occurrence: US)
  Receive Date: 20211011
  Receipt Date: 20220704
  Transmission Date: 20221027
  Serious: Yes (Other)
  Sender: FDA-Public Use
  Company Number: US-SA-SAC20211008000760

PATIENT
  Age: 74 Year
  Sex: Male

DRUGS (1)
  1. ZANTAC [Suspect]
     Active Substance: RANITIDINE HYDROCHLORIDE
     Indication: Abdominal discomfort
     Dosage: QW
     Dates: start: 198301, end: 201911

REACTIONS (2)
  - Prostate cancer stage IV [Unknown]
  - Skin cancer [Unknown]

NARRATIVE: CASE EVENT DATE: 20190701
